FAERS Safety Report 10041510 (Version 2)
Quarter: 2014Q3

REPORT INFORMATION
  Report Type: Spontaneous
  Country: FR (occurrence: None)
  Receive Date: 20140325
  Receipt Date: 20140703
  Transmission Date: 20150326
  Serious: Yes (Death)
  Sender: FDA-Public Use
  Company Number: AXC-2014-000189

PATIENT
  Age: 67 Year
  Sex: Female
  Weight: 60 kg

DRUGS (2)
  1. PYLERA [Suspect]
     Active Substance: BISMUTH SUBCITRATE POTASSIUM\METRONIDAZOLE\TETRACYCLINE HYDROCHLORIDE
     Indication: HELICOBACTER GASTRITIS
     Dosage: 12 DF
     Route: 048
     Dates: start: 20130708, end: 20130710
  2. CRESTOR [Concomitant]
     Active Substance: ROSUVASTATIN CALCIUM

REACTIONS (9)
  - Hallucination [None]
  - Rash erythematous [None]
  - Rash generalised [None]
  - Vertigo [None]
  - Rash [None]
  - Face oedema [None]
  - Syncope [None]
  - Localised oedema [None]
  - Malaise [None]

NARRATIVE: CASE EVENT DATE: 20130710
